FAERS Safety Report 4330918-X (Version None)
Quarter: 2004Q1

REPORT INFORMATION
  Report Type: 
  Country: None (occurrence: None)
  Receive Date: 20040329
  Receipt Date: 20040317
  Transmission Date: 20041129
  Serious: Yes (Hospitalization)
  Sender: FDA-Public Use
  Company Number: US-JNJFOC-20040304123

PATIENT
  Sex: Female

DRUGS (1)
  1. DURAGESIC [Suspect]
     Indication: CANCER PAIN
     Dosage: 400 UG/HR, IN 72 HOUR, TRANSDERMAL
     Route: 062

REACTIONS (1)
  - MALIGNANT NEOPLASM PROGRESSION [None]
